FAERS Safety Report 12906803 (Version 2)
Quarter: 2016Q4

REPORT INFORMATION
  Report Type: Spontaneous
  Country: ES (occurrence: ES)
  Receive Date: 20161103
  Receipt Date: 20161118
  Transmission Date: 20170207
  Serious: Yes (Death, Life-Threatening, Hospitalization, Other)
  Sender: FDA-Public Use
  Company Number: ES-APOTEX-2016AP014200

PATIENT
  Age: 84 Year
  Sex: Female

DRUGS (3)
  1. QUETIAPINA APOTEX COMPRIMIDOS RECUBIERTOS CON PEL?CULA EFG [Suspect]
     Active Substance: QUETIAPINE FUMARATE
     Indication: PRODUCT USED FOR UNKNOWN INDICATION
     Dosage: 25 MG, QD
     Route: 065
  2. FENTANYL. [Suspect]
     Active Substance: FENTANYL
     Indication: PRODUCT USED FOR UNKNOWN INDICATION
     Dosage: 25 MCG/MG, TID
     Route: 065
  3. PAROXETINE. [Suspect]
     Active Substance: PAROXETINE
     Indication: PRODUCT USED FOR UNKNOWN INDICATION
     Dosage: 30 MG, QD
     Route: 065

REACTIONS (18)
  - Hypervigilance [Unknown]
  - Tremor [Unknown]
  - Musculoskeletal stiffness [Unknown]
  - Insomnia [Unknown]
  - Agitation [Unknown]
  - Rhabdomyolysis [Unknown]
  - Serotonin syndrome [Unknown]
  - Dehydration [Unknown]
  - Chills [Unknown]
  - Death [Fatal]
  - Renal failure [Unknown]
  - Mydriasis [Unknown]
  - Clonus [Unknown]
  - Hyperthermia [Unknown]
  - Cardio-respiratory arrest [Unknown]
  - Speech disorder [Unknown]
  - Tachycardia [Unknown]
  - Hyperhidrosis [Unknown]
